FAERS Safety Report 9189163 (Version 6)
Quarter: 2014Q2

REPORT INFORMATION
  Report Type: Report from Study
  Country: US (occurrence: US)
  Receive Date: 20130326
  Receipt Date: 20140626
  Transmission Date: 20141212
  Serious: Yes (Hospitalization)
  Sender: FDA-Public Use
  Company Number: US-BIOGENIDEC-2013BI026737

PATIENT
  Age: 78 Year
  Sex: Female

DRUGS (1)
  1. TYSABRI [Suspect]
     Indication: MULTIPLE SCLEROSIS
     Route: 042
     Dates: start: 20100508, end: 20130109

REACTIONS (7)
  - Staphylococcal infection [Recovered/Resolved]
  - Cellulitis [Not Recovered/Not Resolved]
  - Limb injury [Recovered/Resolved]
  - Nerve injury [Unknown]
  - Pain in extremity [Unknown]
  - Skin lesion [Recovered/Resolved]
  - Drug intolerance [Recovered/Resolved]
